FAERS Safety Report 12697578 (Version 1)
Quarter: 2016Q3

REPORT INFORMATION
  Report Type: Spontaneous
  Country: US (occurrence: None)
  Receive Date: 20160829
  Receipt Date: 20160829
  Transmission Date: 20161109
  Serious: Yes (Hospitalization)
  Sender: FDA-Public Use
  Company Number: None

PATIENT
  Age: 9 Month
  Sex: Male
  Weight: 7.48 kg

DRUGS (8)
  1. FAMOTIDINE. [Concomitant]
     Active Substance: FAMOTIDINE
  2. METHADONE [Concomitant]
     Active Substance: METHADONE HYDROCHLORIDE
  3. FERROUS SULFATE 75MG(15MG IRON)/ML [Suspect]
     Active Substance: FERROUS SULFATE
     Indication: MINERAL SUPPLEMENTATION
     Route: 048
     Dates: start: 20160528, end: 20160614
  4. ASPIRIN. [Concomitant]
     Active Substance: ASPIRIN
  5. CHLOROTHIAZIDE. [Concomitant]
     Active Substance: CHLOROTHIAZIDE
  6. DIAZEPAM. [Concomitant]
     Active Substance: DIAZEPAM
  7. EPOETIN ALFA [Concomitant]
     Active Substance: ERYTHROPOIETIN
  8. CHOLECALCIFEROL [Concomitant]
     Active Substance: CHOLECALCIFEROL

REACTIONS (1)
  - Product use issue [None]

NARRATIVE: CASE EVENT DATE: 20160816
